FAERS Safety Report 5722400-X (Version None)
Quarter: 2008Q2

REPORT INFORMATION
  Report Type: 
  Country: None (occurrence: None)
  Receive Date: 20080429
  Receipt Date: 20080421
  Transmission Date: 20081010
  Serious: Yes (Hospitalization)
  Sender: FDA-Public Use
  Company Number: US-MERCK-0804USA04533

PATIENT
  Age: 25 Month
  Sex: Male

DRUGS (5)
  1. SINGULAIR [Suspect]
     Indication: ASTHMA
     Route: 048
     Dates: start: 20060101
  2. SINGULAIR [Suspect]
     Indication: HYPERSENSITIVITY
     Route: 048
     Dates: start: 20060101
  3. ZYRTEC [Concomitant]
     Route: 065
  4. LEXAPRO [Concomitant]
     Route: 065
  5. ALBUTEROL [Concomitant]
     Route: 065

REACTIONS (2)
  - ANXIETY [None]
  - EATING DISORDER [None]
